FAERS Safety Report 24014313 (Version 1)
Quarter: 2024Q2

REPORT INFORMATION
  Report Type: Spontaneous
  Country: CN (occurrence: CN)
  Receive Date: 20240626
  Receipt Date: 20240626
  Transmission Date: 20240716
  Serious: Yes (Other)
  Sender: FDA-Public Use
  Company Number: CN-STRIDES ARCOLAB LIMITED-2024SP007356

PATIENT

DRUGS (5)
  1. PREDNISOLONE [Suspect]
     Active Substance: PREDNISOLONE
     Indication: Diffuse large B-cell lymphoma
     Dosage: UNK, CYCLICAL, (60-100MG FROM DAY 1 TO DAY5) (21 DAYS COURSE FOR 6 CONSECUTIVE COURSES)
     Route: 048
  2. RITUXIMAB [Suspect]
     Active Substance: RITUXIMAB
     Indication: Diffuse large B-cell lymphoma
     Dosage: UNK, CYCLICAL, (21 DAYS COURSE FOR 6 CONSECUTIVE COURSES)
     Route: 065
  3. CYCLOPHOSPHAMIDE [Suspect]
     Active Substance: CYCLOPHOSPHAMIDE
     Indication: Diffuse large B-cell lymphoma
     Dosage: 750 MILLIGRAM/SQ. METER, CYCLICAL, (ON THE FIRST DAY) (21 DAYS COURSE FOR 6 CONSECUTIVE COURSES)
     Route: 042
  4. ADRIAMYCIN [Suspect]
     Active Substance: DOXORUBICIN HYDROCHLORIDE
     Indication: Diffuse large B-cell lymphoma
     Dosage: 50 MILLIGRAM/SQ. METER, CYCLICAL, (ON THE FIRST DAY) (21 DAYS COURSE FOR 6 CONSECUTIVE COURSES)
     Route: 042
  5. VINCRISTINE [Suspect]
     Active Substance: VINCRISTINE
     Indication: Diffuse large B-cell lymphoma
     Dosage: 1.4 MILLIGRAM/SQ. METER, CYCLICAL, (ON THE FIRST DAY) (21 DAYS COURSE FOR 6 CONSECUTIVE COURSES)
     Route: 040

REACTIONS (1)
  - Myocardial injury [Unknown]
